FAERS Safety Report 5767358-2 (Version None)
Quarter: 2008Q2

REPORT INFORMATION
  Report Type: 
  Country: None (occurrence: None)
  Receive Date: 20080612
  Receipt Date: 20080610
  Transmission Date: 20081010
  Serious: Yes (Hospitalization)
  Sender: FDA-Public Use
  Company Number: A0732234A

PATIENT
  Age: 58 Year
  Sex: Female

DRUGS (14)
  1. ADVAIR DISKUS 100/50 [Suspect]
     Indication: ASTHMA
     Dosage: 2PUFF TWICE PER DAY
     Route: 055
     Dates: start: 20070401, end: 20080101
  2. SYNTHROID [Concomitant]
  3. LASIX [Concomitant]
  4. LISINOPRIL [Concomitant]
  5. EFFEXOR [Concomitant]
  6. SINGULAIR [Concomitant]
  7. FLEXERIL [Concomitant]
  8. FOSAMAX [Concomitant]
  9. ASTELIN [Concomitant]
  10. NASACORT [Concomitant]
  11. ALBUTEROL [Concomitant]
  12. FLOVENT [Concomitant]
  13. VITAMINS [Concomitant]
  14. SODIUM CHLORIDE 0.9% [Concomitant]

REACTIONS (3)
  - BRONCHITIS [None]
  - COUGH [None]
  - PNEUMONIA [None]
